FAERS Safety Report 10064619 (Version 2)
Quarter: 2014Q2

REPORT INFORMATION
  Report Type: Spontaneous
  Country: US (occurrence: None)
  Receive Date: 20140404
  Receipt Date: 20140418
  Transmission Date: 20141212
  Serious: Yes (Other)
  Sender: FDA-Public Use
  Company Number: 2014-US-003540

PATIENT
  Age: 77 Year
  Sex: Female
  Weight: 70.3 kg

DRUGS (4)
  1. XYREM [Suspect]
     Indication: CATAPLEXY
     Route: 048
     Dates: start: 200708
  2. XYREM [Suspect]
     Indication: NARCOLEPSY
     Route: 048
     Dates: start: 200708
  3. GLUCOPHAGE (METFORMIN HYDROCHLORIDE) [Concomitant]
  4. METFORMIN (METFORMIN HYDROCHLORIDE) [Concomitant]

REACTIONS (4)
  - Limb injury [None]
  - Swelling [None]
  - Blister [None]
  - Fall [None]
